FAERS Safety Report 8595895 (Version 3)
Quarter: 2013Q4

REPORT INFORMATION
  Report Type: Spontaneous
  Country: US (occurrence: US)
  Receive Date: 20120605
  Receipt Date: 20131129
  Transmission Date: 20140711
  Serious: Yes (Hospitalization, Disabling, Other)
  Sender: FDA-Public Use
  Company Number: US-ASTRAZENECA-2012SE35935

PATIENT
  Age: 49 Year
  Sex: Female
  Weight: 101.6 kg

DRUGS (37)
  1. NEXIUM [Suspect]
     Indication: GASTROOESOPHAGEAL REFLUX DISEASE
     Route: 048
     Dates: start: 1990, end: 20130220
  2. NEXIUM [Suspect]
     Indication: GASTRIC DISORDER
     Route: 048
     Dates: start: 1990, end: 20130220
  3. NEXIUM [Suspect]
     Indication: GASTROOESOPHAGEAL REFLUX DISEASE
     Route: 048
  4. NEXIUM [Suspect]
     Indication: GASTRIC DISORDER
     Route: 048
  5. NEXIUM [Suspect]
     Indication: GASTROOESOPHAGEAL REFLUX DISEASE
     Route: 048
     Dates: start: 20100208
  6. NEXIUM [Suspect]
     Indication: GASTRIC DISORDER
     Route: 048
     Dates: start: 20100208
  7. PRILOSEC [Suspect]
     Route: 048
  8. PRILOSEC OTC [Suspect]
     Route: 048
  9. PROTONIX [Concomitant]
     Dates: start: 20130220
  10. PREVACID [Concomitant]
  11. TAGAMET [Concomitant]
  12. ZANTAC [Concomitant]
  13. PEPCID [Concomitant]
  14. METOPROLOL [Concomitant]
  15. MULTIVITAMINS [Concomitant]
  16. DILANTIN [Concomitant]
  17. ULTRAM [Concomitant]
  18. PEPTO BISMOL [Concomitant]
     Indication: DIARRHOEA
  19. METHOCARBAMOL [Concomitant]
  20. HYDROCODONE [Concomitant]
     Dosage: 10-325 MG
  21. TRAMADOL [Concomitant]
  22. PROMETHAZINE [Concomitant]
  23. HYDROCORTISONE [Concomitant]
  24. DIAZEPAM [Concomitant]
  25. NAPROXEN [Concomitant]
     Dates: start: 20110630
  26. ALPRAZOLAM [Concomitant]
     Dates: start: 20110603
  27. LISINOPRIL [Concomitant]
     Dates: start: 20091229
  28. PREDNISONE [Concomitant]
     Dates: start: 20110701
  29. PREZISTA [Concomitant]
     Dates: start: 20120229
  30. NORVIR [Concomitant]
     Dates: start: 20120229
  31. CYCLOBENZAPR [Concomitant]
     Dates: start: 20120321
  32. TOPROL XL [Concomitant]
     Route: 048
  33. ZOLOFT [Concomitant]
     Route: 048
  34. ARMOUR THYROID [Concomitant]
     Route: 048
  35. VALTREX [Concomitant]
     Route: 048
  36. PHENERGAN [Concomitant]
     Route: 048
  37. NORCO [Concomitant]
     Dosage: ORAL 10-325 AS NEEDED

REACTIONS (37)
  - Convulsion [Unknown]
  - Chest pain [Unknown]
  - Hernia [Unknown]
  - Paranoia [Unknown]
  - Muscular weakness [Unknown]
  - Osteoporosis [Unknown]
  - Multiple fractures [Unknown]
  - Memory impairment [Unknown]
  - Panic attack [Unknown]
  - Polyp [Unknown]
  - Irritable bowel syndrome [Unknown]
  - Hypertension [Unknown]
  - Renal disorder [Unknown]
  - Bone disorder [Unknown]
  - Angina pectoris [Unknown]
  - Arthritis [Unknown]
  - Calcium deficiency [Unknown]
  - Rheumatoid arthritis [Unknown]
  - Hyperparathyroidism [Unknown]
  - Hypothyroidism [Unknown]
  - Scoliosis [Unknown]
  - Heart rate increased [Unknown]
  - Fall [Unknown]
  - Lower limb fracture [Unknown]
  - Intervertebral disc degeneration [Unknown]
  - Exostosis [Unknown]
  - Osteoarthritis [Unknown]
  - Ligament sprain [Unknown]
  - Muscle spasms [Unknown]
  - Contusion [Unknown]
  - Liver disorder [Unknown]
  - Headache [Unknown]
  - Vomiting [Unknown]
  - Abdominal pain [Unknown]
  - Diarrhoea [Unknown]
  - Depression [Unknown]
  - Vision blurred [Unknown]
